FAERS Safety Report 10052788 (Version 1)
Quarter: 2014Q1

REPORT INFORMATION
  Report Type: Spontaneous
  Country: GB (occurrence: None)
  Receive Date: 20140331
  Receipt Date: 20140331
  Transmission Date: 20141002
  Serious: Yes (Other)
  Sender: FDA-Public Use
  Company Number: AUR-APL-2014-03929

PATIENT
  Age: 68 Year
  Sex: Male

DRUGS (1)
  1. CIPROFLOXACIN [Suspect]
     Indication: PROSTATITIS
     Dosage: 500 MG (250 MG, 2 IN 1 D)
     Dates: start: 20131125

REACTIONS (26)
  - Chest pain [None]
  - Tremor [None]
  - Myalgia [None]
  - Tendon pain [None]
  - Headache [None]
  - Musculoskeletal chest pain [None]
  - Tendonitis [None]
  - Tendon rupture [None]
  - Hyperhidrosis [None]
  - Vision blurred [None]
  - Hypertension [None]
  - Insomnia [None]
  - Neck pain [None]
  - Tinnitus [None]
  - Polyuria [None]
  - Visual impairment [None]
  - Drug interaction [None]
  - Vitreous floaters [None]
  - Pain in extremity [None]
  - Arthralgia [None]
  - Pain in jaw [None]
  - Nervousness [None]
  - Anxiety [None]
  - Dyspepsia [None]
  - Burning sensation [None]
  - Prostatic disorder [None]
